FAERS Safety Report 9528237 (Version 1)
Quarter: 2013Q1

REPORT INFORMATION
  Report Type: Spontaneous
  Country: US (occurrence: None)
  Receive Date: 20130314
  Receipt Date: 20130314
  Transmission Date: 20140127
  Serious: No
  Sender: FDA-Public Use
  Company Number: 1208USA003920

PATIENT
  Age: 54 Year
  Sex: Male

DRUGS (5)
  1. VICTRELIS [Suspect]
     Indication: HEPATITIS C
     Dates: start: 20120802
  2. PEGASYS [Suspect]
     Indication: HEPATITIS C
     Dates: start: 20120622
  3. RIBASPHERE [Suspect]
     Indication: HEPATITIS C
     Dates: start: 20120622
  4. OMEPRAZOLE [Concomitant]
  5. HYDROCHLOROTHIAZIDE (+) LISINOPRIL [Suspect]

REACTIONS (8)
  - Headache [None]
  - Increased appetite [None]
  - Initial insomnia [None]
  - Nausea [None]
  - Drug ineffective [None]
  - Poor quality sleep [None]
  - Red blood cell count decreased [None]
  - Depression [None]
